FAERS Safety Report 8988398 (Version 2)
Quarter: 2013Q1

REPORT INFORMATION
  Report Type: Spontaneous
  Country: DK (occurrence: None)
  Receive Date: 20121218
  Receipt Date: 20130116
  Transmission Date: 20140127
  Serious: Yes (Hospitalization)
  Sender: FDA-Public Use
  Company Number: 2012MA014090

PATIENT
  Age: 67 Year
  Sex: Female

DRUGS (1)
  1. METFORMIN HYDROCHLORIDE [Suspect]
     Indication: TYPE 2 DIABETES MELLITUS
     Route: 048
     Dates: start: 20120201, end: 20121107

REACTIONS (8)
  - Nausea [None]
  - Vomiting [None]
  - Food aversion [None]
  - Weight decreased [None]
  - Syncope [None]
  - Hypotension [None]
  - Dehydration [None]
  - Laboratory test abnormal [None]
